FAERS Safety Report 4746086-6 (Version None)
Quarter: 2005Q3

REPORT INFORMATION
  Report Type: 
  Country: None (occurrence: None)
  Receive Date: 20050816
  Receipt Date: 20050815
  Transmission Date: 20060218
  Serious: Yes (Death)
  Sender: FDA-Public Use
  Company Number: PHFR2005GB02753

PATIENT
  Age: 40 Year
  Sex: Male

DRUGS (6)
  1. CLOZAPINE [Suspect]
     Indication: SCHIZOPHRENIA
     Dosage: 525-550 MG/DAY
     Route: 048
     Dates: start: 20020101, end: 20031123
  2. ATORVASTATIN CALCIUM [Concomitant]
     Indication: TRANSIENT ISCHAEMIC ATTACK
     Dosage: 10 MG/DAY
     Dates: start: 20030710
  3. ASPIRIN [Concomitant]
     Indication: TRANSIENT ISCHAEMIC ATTACK
     Route: 065
     Dates: start: 20030828
  4. METOCLOPRAMIDE [Concomitant]
     Indication: VOMITING
     Dosage: 10 MG, TID
     Route: 065
     Dates: start: 20030909
  5. PIRENZEPINE [Concomitant]
     Indication: SALIVARY HYPERSECRETION
     Dosage: 25 MG, TID
     Route: 065
  6. OMEPRAZOLE [Concomitant]
     Dosage: 20 MG/DAY
     Route: 065
     Dates: start: 20020619

REACTIONS (11)
  - ABDOMINAL PAIN [None]
  - CONSTIPATION [None]
  - CYANOSIS [None]
  - FEELING ABNORMAL [None]
  - GAIT DISTURBANCE [None]
  - GASTROINTESTINAL HAEMORRHAGE [None]
  - HEART RATE DECREASED [None]
  - HYPERHIDROSIS [None]
  - LOSS OF CONSCIOUSNESS [None]
  - MYOCLONUS [None]
  - ORTHOSTATIC HYPOTENSION [None]
